FAERS Safety Report 24791414 (Version 2)
Quarter: 2025Q1

REPORT INFORMATION
  Report Type: Spontaneous
  Country: CA (occurrence: CA)
  Receive Date: 20241231
  Receipt Date: 20250226
  Transmission Date: 20250409
  Serious: Yes (Congenital Anomaly)
  Sender: BRISTOL-MYERS SQUIBB COMPANY
  Company Number: CA-BRISTOL-MYERS SQUIBB COMPANY-2024-198245

PATIENT

DRUGS (246)
  1. ORENCIA [Suspect]
     Active Substance: ABATACEPT
     Indication: Product used for unknown indication
     Route: 064
  2. ORENCIA [Suspect]
     Active Substance: ABATACEPT
     Route: 064
  3. ORENCIA [Suspect]
     Active Substance: ABATACEPT
     Route: 064
  4. ORENCIA [Suspect]
     Active Substance: ABATACEPT
     Route: 064
  5. ORENCIA [Suspect]
     Active Substance: ABATACEPT
     Indication: Product used for unknown indication
     Route: 064
  6. ORENCIA [Suspect]
     Active Substance: ABATACEPT
     Route: 064
  7. ORENCIA [Suspect]
     Active Substance: ABATACEPT
     Route: 064
  8. ORENCIA [Suspect]
     Active Substance: ABATACEPT
     Route: 064
  9. TRIAMCINOLONE ACETONIDE [Suspect]
     Active Substance: TRIAMCINOLONE ACETONIDE
     Indication: Product used for unknown indication
     Route: 064
  10. ACETAMINOPHEN [Concomitant]
     Active Substance: ACETAMINOPHEN
     Indication: Product used for unknown indication
     Route: 064
  11. ADALIMUMAB [Concomitant]
     Active Substance: ADALIMUMAB
     Indication: Product used for unknown indication
     Route: 064
  12. ADALIMUMAB [Concomitant]
     Active Substance: ADALIMUMAB
     Route: 064
  13. ADALIMUMAB [Concomitant]
     Active Substance: ADALIMUMAB
     Route: 064
  14. ADALIMUMAB [Concomitant]
     Active Substance: ADALIMUMAB
     Route: 064
  15. ADALIMUMAB [Concomitant]
     Active Substance: ADALIMUMAB
     Route: 064
  16. ADALIMUMAB [Concomitant]
     Active Substance: ADALIMUMAB
     Route: 064
  17. AIMOVIG [Concomitant]
     Active Substance: ERENUMAB-AOOE
     Indication: Product used for unknown indication
     Route: 064
  18. AIMOVIG [Concomitant]
     Active Substance: ERENUMAB-AOOE
     Route: 064
  19. ALENDRONATE SODIUM [Concomitant]
     Active Substance: ALENDRONATE SODIUM
     Indication: Product used for unknown indication
     Route: 064
  20. ALENDRONATE SODIUM [Concomitant]
     Active Substance: ALENDRONATE SODIUM
     Route: 064
  21. ALENDRONATE SODIUM [Concomitant]
     Active Substance: ALENDRONATE SODIUM
     Route: 064
  22. AZATHIOPRINE [Concomitant]
     Active Substance: AZATHIOPRINE
     Indication: Product used for unknown indication
     Route: 064
  23. CAFFEINE\CHLORPHENIRAMINE\PHENYLPROPANOLAMINE [Concomitant]
     Active Substance: CAFFEINE\CHLORPHENIRAMINE\PHENYLPROPANOLAMINE
     Indication: Product used for unknown indication
     Route: 064
  24. CANDESARTAN [Concomitant]
     Active Substance: CANDESARTAN
     Indication: Product used for unknown indication
     Route: 064
  25. CANDESARTAN [Concomitant]
     Active Substance: CANDESARTAN
     Route: 064
  26. CETIRIZINE HYDROCHLORIDE [Concomitant]
     Active Substance: CETIRIZINE HYDROCHLORIDE
     Indication: Product used for unknown indication
     Route: 064
  27. CETIRIZINE HYDROCHLORIDE [Concomitant]
     Active Substance: CETIRIZINE HYDROCHLORIDE
     Route: 064
  28. COSENTYX [Concomitant]
     Active Substance: SECUKINUMAB
     Indication: Product used for unknown indication
     Route: 064
  29. DICLOFENAC [Concomitant]
     Active Substance: DICLOFENAC
     Indication: Product used for unknown indication
     Route: 064
  30. ERELZI [Concomitant]
     Active Substance: ETANERCEPT-SZZS
     Indication: Product used for unknown indication
     Route: 064
  31. ERELZI [Concomitant]
     Active Substance: ETANERCEPT-SZZS
     Route: 064
  32. FLUMETHASONE PIVALATE [Concomitant]
     Active Substance: FLUMETHASONE PIVALATE
     Indication: Product used for unknown indication
     Route: 064
  33. FLUMETHASONE PIVALATE [Concomitant]
     Active Substance: FLUMETHASONE PIVALATE
     Route: 064
  34. FOLIC ACID [Concomitant]
     Active Substance: FOLIC ACID
     Indication: Product used for unknown indication
     Route: 064
  35. FOLIC ACID [Concomitant]
     Active Substance: FOLIC ACID
     Route: 064
  36. FOLIC ACID [Concomitant]
     Active Substance: FOLIC ACID
     Route: 064
  37. FOLIC ACID [Concomitant]
     Active Substance: FOLIC ACID
     Route: 064
  38. FOLIC ACID [Concomitant]
     Active Substance: FOLIC ACID
     Route: 064
  39. FOLIC ACID [Concomitant]
     Active Substance: FOLIC ACID
     Route: 064
  40. FOLIC ACID [Concomitant]
     Active Substance: FOLIC ACID
     Route: 064
  41. HAIR KERATIN AMINO ACIDS GOLD COMPLEX [Concomitant]
     Active Substance: HAIR KERATIN AMINO ACIDS GOLD COMPLEX
     Indication: Product used for unknown indication
     Route: 064
  42. GOLD SODIUM THIOMALATE [Concomitant]
     Active Substance: GOLD SODIUM THIOMALATE
     Indication: Product used for unknown indication
     Route: 064
  43. HYDROCORTISONE [Concomitant]
     Active Substance: HYDROCORTISONE
     Indication: Product used for unknown indication
     Route: 064
  44. HYDROCORTISONE PROBUTATE [Concomitant]
     Active Substance: HYDROCORTISONE PROBUTATE
     Indication: Product used for unknown indication
     Route: 064
  45. HYDROXYCHLOROQUINE [Concomitant]
     Active Substance: HYDROXYCHLOROQUINE
     Indication: Product used for unknown indication
     Route: 064
  46. HYDROXYCHLOROQUINE [Concomitant]
     Active Substance: HYDROXYCHLOROQUINE
     Route: 064
  47. HYDROXYCHLOROQUINE [Concomitant]
     Active Substance: HYDROXYCHLOROQUINE
     Route: 064
  48. HYDROXYCHLOROQUINE [Concomitant]
     Active Substance: HYDROXYCHLOROQUINE
     Route: 064
  49. HYDROXYCHLOROQUINE [Concomitant]
     Active Substance: HYDROXYCHLOROQUINE
     Route: 064
  50. HYDROXYCHLOROQUINE [Concomitant]
     Active Substance: HYDROXYCHLOROQUINE
     Route: 064
  51. HYDROXYCHLOROQUINE [Concomitant]
     Active Substance: HYDROXYCHLOROQUINE
     Route: 064
  52. HYDROXYCHLOROQUINE [Concomitant]
     Active Substance: HYDROXYCHLOROQUINE
     Route: 064
  53. HYDROXYCHLOROQUINE [Concomitant]
     Active Substance: HYDROXYCHLOROQUINE
     Route: 064
  54. HYDROXYCHLOROQUINE SULFATE [Concomitant]
     Active Substance: HYDROXYCHLOROQUINE SULFATE
     Indication: Product used for unknown indication
     Route: 064
  55. HYDROXYCHLOROQUINE SULFATE [Concomitant]
     Active Substance: HYDROXYCHLOROQUINE SULFATE
     Route: 064
  56. HYDROXYCHLOROQUINE SULFATE [Concomitant]
     Active Substance: HYDROXYCHLOROQUINE SULFATE
     Route: 064
  57. HYDROXYCHLOROQUINE SULFATE [Concomitant]
     Active Substance: HYDROXYCHLOROQUINE SULFATE
     Route: 064
  58. HYDROXYCHLOROQUINE SULFATE [Concomitant]
     Active Substance: HYDROXYCHLOROQUINE SULFATE
     Route: 064
  59. HYDROXYCHLOROQUINE SULFATE [Concomitant]
     Active Substance: HYDROXYCHLOROQUINE SULFATE
     Route: 064
  60. INFLIXIMAB [Concomitant]
     Active Substance: INFLIXIMAB
     Indication: Product used for unknown indication
     Route: 064
  61. INFLIXIMAB [Concomitant]
     Active Substance: INFLIXIMAB
     Route: 064
  62. INFLIXIMAB [Concomitant]
     Active Substance: INFLIXIMAB
     Route: 064
  63. INFLIXIMAB [Concomitant]
     Active Substance: INFLIXIMAB
     Route: 064
  64. LAMICTAL [Concomitant]
     Active Substance: LAMOTRIGINE
     Indication: Product used for unknown indication
     Route: 064
  65. LAMICTAL [Concomitant]
     Active Substance: LAMOTRIGINE
     Route: 064
  66. LAMICTAL [Concomitant]
     Active Substance: LAMOTRIGINE
     Route: 064
  67. MAGNESIUM CITRATE [Concomitant]
     Active Substance: MAGNESIUM CITRATE
     Indication: Product used for unknown indication
     Route: 064
  68. METFORMIN HYDROCHLORIDE [Concomitant]
     Active Substance: METFORMIN HYDROCHLORIDE
     Indication: Product used for unknown indication
     Route: 064
  69. METHOTREXATE [Concomitant]
     Active Substance: METHOTREXATE
     Indication: Product used for unknown indication
     Route: 064
  70. METHOTREXATE [Concomitant]
     Active Substance: METHOTREXATE
     Route: 064
  71. METHOTREXATE [Concomitant]
     Active Substance: METHOTREXATE
     Route: 064
  72. METHOTREXATE [Concomitant]
     Active Substance: METHOTREXATE
     Route: 064
  73. METHOTREXATE [Concomitant]
     Active Substance: METHOTREXATE
     Route: 064
  74. METHOTREXATE [Concomitant]
     Active Substance: METHOTREXATE
     Route: 064
  75. METHOTREXATE [Concomitant]
     Active Substance: METHOTREXATE
     Route: 064
  76. METHOTREXATE [Concomitant]
     Active Substance: METHOTREXATE
     Route: 064
  77. METHYLPREDNISOLONE [Concomitant]
     Active Substance: METHYLPREDNISOLONE
     Indication: Product used for unknown indication
     Route: 064
  78. MINOCYCLINE HYDROCHLORIDE [Concomitant]
     Active Substance: MINOCYCLINE HYDROCHLORIDE
     Indication: Product used for unknown indication
     Route: 064
  79. MYOCHRYSINE [Concomitant]
     Active Substance: GOLD SODIUM THIOMALATE
     Indication: Product used for unknown indication
     Route: 064
  80. MYOCHRYSINE [Concomitant]
     Active Substance: GOLD SODIUM THIOMALATE
     Route: 064
  81. MYRBETRIQ [Concomitant]
     Active Substance: MIRABEGRON
     Indication: Product used for unknown indication
     Route: 064
  82. MYRBETRIQ [Concomitant]
     Active Substance: MIRABEGRON
     Route: 064
  83. MYRBETRIQ [Concomitant]
     Active Substance: MIRABEGRON
     Route: 064
  84. NAPROXEN [Concomitant]
     Active Substance: NAPROXEN
     Indication: Product used for unknown indication
     Route: 064
  85. NAPROXEN [Concomitant]
     Active Substance: NAPROXEN
     Route: 064
  86. NAPROXEN SODIUM [Concomitant]
     Active Substance: NAPROXEN SODIUM
     Indication: Product used for unknown indication
     Route: 064
  87. NAPROXEN SODIUM [Concomitant]
     Active Substance: NAPROXEN SODIUM
     Route: 064
  88. NICOTINAMIDE [Concomitant]
     Active Substance: NIACINAMIDE
     Indication: Product used for unknown indication
     Route: 064
  89. NUCALA [Concomitant]
     Active Substance: MEPOLIZUMAB
     Indication: Product used for unknown indication
     Route: 064
  90. OXYCODONE [Concomitant]
     Active Substance: OXYCODONE
     Indication: Product used for unknown indication
     Route: 064
  91. OXYCODONE TEREPHTHALATE [Concomitant]
     Active Substance: OXYCODONE TEREPHTHALATE
     Indication: Product used for unknown indication
     Route: 064
  92. PERIOGARD [Concomitant]
     Active Substance: CHLORHEXIDINE GLUCONATE
     Indication: Product used for unknown indication
     Route: 064
  93. PHTHALYLSULFATHIAZOLE [Concomitant]
     Active Substance: PHTHALYLSULFATHIAZOLE
     Indication: Product used for unknown indication
     Route: 064
  94. PHTHALYLSULFATHIAZOLE [Concomitant]
     Active Substance: PHTHALYLSULFATHIAZOLE
     Route: 064
  95. PHTHALYLSULFATHIAZOLE [Concomitant]
     Active Substance: PHTHALYLSULFATHIAZOLE
     Route: 064
  96. PHTHALYLSULFATHIAZOLE [Concomitant]
     Active Substance: PHTHALYLSULFATHIAZOLE
     Route: 064
  97. PHTHALYLSULFATHIAZOLE [Concomitant]
     Active Substance: PHTHALYLSULFATHIAZOLE
     Route: 064
  98. HYDROXYCHLOROQUINE DIPHOSPHATE [Concomitant]
     Active Substance: HYDROXYCHLOROQUINE DIPHOSPHATE
     Indication: Product used for unknown indication
     Route: 064
  99. PREDNISONE [Concomitant]
     Active Substance: PREDNISONE
     Indication: Product used for unknown indication
     Route: 064
  100. PREDNISONE [Concomitant]
     Active Substance: PREDNISONE
     Route: 064
  101. PREDNISONE [Concomitant]
     Active Substance: PREDNISONE
     Route: 064
  102. PREDNISONE [Concomitant]
     Active Substance: PREDNISONE
     Route: 064
  103. PREDNISONE [Concomitant]
     Active Substance: PREDNISONE
     Route: 064
  104. PSEUDOEPHEDRINE [Concomitant]
     Active Substance: PSEUDOEPHEDRINE
     Indication: Product used for unknown indication
     Route: 064
  105. PSEUDOEPHEDRINE [Concomitant]
     Active Substance: PSEUDOEPHEDRINE
     Route: 064
  106. PSEUDOEPHEDRINE [Concomitant]
     Active Substance: PSEUDOEPHEDRINE
     Route: 064
  107. RAMIPRIL [Concomitant]
     Active Substance: RAMIPRIL
     Indication: Product used for unknown indication
     Route: 064
  108. RANITIDINE [Concomitant]
     Active Substance: RANITIDINE
     Indication: Product used for unknown indication
     Route: 064
  109. CETIRIZINE HYDROCHLORIDE\PSEUDOEPHEDRINE HYDROCHLORIDE [Concomitant]
     Active Substance: CETIRIZINE HYDROCHLORIDE\PSEUDOEPHEDRINE HYDROCHLORIDE
     Indication: Product used for unknown indication
     Route: 064
  110. CETIRIZINE HYDROCHLORIDE\PSEUDOEPHEDRINE HYDROCHLORIDE [Concomitant]
     Active Substance: CETIRIZINE HYDROCHLORIDE\PSEUDOEPHEDRINE HYDROCHLORIDE
     Route: 064
  111. CETIRIZINE HYDROCHLORIDE\PSEUDOEPHEDRINE HYDROCHLORIDE [Concomitant]
     Active Substance: CETIRIZINE HYDROCHLORIDE\PSEUDOEPHEDRINE HYDROCHLORIDE
     Route: 064
  112. CETIRIZINE HYDROCHLORIDE\PSEUDOEPHEDRINE HYDROCHLORIDE [Concomitant]
     Active Substance: CETIRIZINE HYDROCHLORIDE\PSEUDOEPHEDRINE HYDROCHLORIDE
     Route: 064
  113. CETIRIZINE HYDROCHLORIDE\PSEUDOEPHEDRINE HYDROCHLORIDE [Concomitant]
     Active Substance: CETIRIZINE HYDROCHLORIDE\PSEUDOEPHEDRINE HYDROCHLORIDE
     Route: 064
  114. REMICADE [Concomitant]
     Active Substance: INFLIXIMAB
     Indication: Product used for unknown indication
     Route: 064
  115. RIBOFLAVIN [Concomitant]
     Active Substance: RIBOFLAVIN
     Indication: Product used for unknown indication
     Route: 064
  116. RITUXIMAB [Concomitant]
     Active Substance: RITUXIMAB
     Indication: Product used for unknown indication
     Route: 064
  117. RITUXIMAB [Concomitant]
     Active Substance: RITUXIMAB
     Route: 064
  118. RITUXIMAB [Concomitant]
     Active Substance: RITUXIMAB
     Route: 064
  119. RITUXIMAB [Concomitant]
     Active Substance: RITUXIMAB
     Route: 064
  120. RITUXIMAB [Concomitant]
     Active Substance: RITUXIMAB
     Route: 064
  121. RITUXIMAB [Concomitant]
     Active Substance: RITUXIMAB
     Route: 064
  122. RITUXIMAB [Concomitant]
     Active Substance: RITUXIMAB
     Route: 064
  123. RITUXIMAB [Concomitant]
     Active Substance: RITUXIMAB
     Route: 064
  124. RITUXIMAB [Concomitant]
     Active Substance: RITUXIMAB
     Route: 064
  125. RITUXIMAB [Concomitant]
     Active Substance: RITUXIMAB
     Route: 064
  126. RITUXIMAB [Concomitant]
     Active Substance: RITUXIMAB
     Route: 064
  127. RITUXIMAB [Concomitant]
     Active Substance: RITUXIMAB
     Route: 064
  128. SULFASALAZINE [Concomitant]
     Active Substance: SULFASALAZINE
     Indication: Product used for unknown indication
     Route: 064
  129. SIMPONI [Concomitant]
     Active Substance: GOLIMUMAB
     Indication: Product used for unknown indication
     Route: 064
  130. SIMPONI [Concomitant]
     Active Substance: GOLIMUMAB
     Route: 064
  131. SIMPONI [Concomitant]
     Active Substance: GOLIMUMAB
     Route: 064
  132. SIMPONI [Concomitant]
     Active Substance: GOLIMUMAB
     Route: 064
  133. SIRUKUMAB [Concomitant]
     Active Substance: SIRUKUMAB
     Indication: Product used for unknown indication
     Route: 064
  134. GOLD SODIUM THIOMALATE [Concomitant]
     Active Substance: GOLD SODIUM THIOMALATE
     Indication: Product used for unknown indication
     Route: 064
  135. TRAMADOL HYDROCHLORIDE [Concomitant]
     Active Substance: TRAMADOL HYDROCHLORIDE
     Indication: Product used for unknown indication
     Route: 064
  136. ACETAMINOPHEN\CODEINE PHOSPHATE [Concomitant]
     Active Substance: ACETAMINOPHEN\CODEINE PHOSPHATE
     Indication: Product used for unknown indication
     Route: 064
  137. ACTEMRA [Concomitant]
     Active Substance: TOCILIZUMAB
     Indication: Product used for unknown indication
     Route: 064
  138. ACTEMRA [Concomitant]
     Active Substance: TOCILIZUMAB
     Route: 064
  139. ACTEMRA [Concomitant]
     Active Substance: TOCILIZUMAB
     Route: 064
  140. ACTEMRA [Concomitant]
     Active Substance: TOCILIZUMAB
     Route: 064
  141. ACTEMRA [Concomitant]
     Active Substance: TOCILIZUMAB
     Route: 064
  142. ACTEMRA [Concomitant]
     Active Substance: TOCILIZUMAB
     Route: 064
  143. ACTEMRA [Concomitant]
     Active Substance: TOCILIZUMAB
     Route: 064
  144. ACTEMRA [Concomitant]
     Active Substance: TOCILIZUMAB
     Route: 064
  145. ACTEMRA [Concomitant]
     Active Substance: TOCILIZUMAB
     Route: 064
  146. ACTEMRA [Concomitant]
     Active Substance: TOCILIZUMAB
     Route: 064
  147. ACTEMRA [Concomitant]
     Active Substance: TOCILIZUMAB
     Route: 064
  148. ACTEMRA [Concomitant]
     Active Substance: TOCILIZUMAB
     Route: 064
  149. DICLOFENAC POTASSIUM [Concomitant]
     Active Substance: DICLOFENAC POTASSIUM
     Indication: Product used for unknown indication
     Route: 064
  150. DICLOFENAC POTASSIUM [Concomitant]
     Active Substance: DICLOFENAC POTASSIUM
     Route: 064
  151. LEFLUNOMIDE [Concomitant]
     Active Substance: LEFLUNOMIDE
     Indication: Product used for unknown indication
     Route: 064
  152. LEFLUNOMIDE [Concomitant]
     Active Substance: LEFLUNOMIDE
     Route: 064
  153. LEFLUNOMIDE [Concomitant]
     Active Substance: LEFLUNOMIDE
     Route: 064
  154. LEFLUNOMIDE [Concomitant]
     Active Substance: LEFLUNOMIDE
     Route: 064
  155. LEFLUNOMIDE [Concomitant]
     Active Substance: LEFLUNOMIDE
     Route: 064
  156. LEFLUNOMIDE [Concomitant]
     Active Substance: LEFLUNOMIDE
     Route: 064
  157. LEFLUNOMIDE [Concomitant]
     Active Substance: LEFLUNOMIDE
     Route: 064
  158. LEFLUNOMIDE [Concomitant]
     Active Substance: LEFLUNOMIDE
     Route: 064
  159. LEFLUNOMIDE [Concomitant]
     Active Substance: LEFLUNOMIDE
     Route: 064
  160. ARAVA [Concomitant]
     Active Substance: LEFLUNOMIDE
     Indication: Product used for unknown indication
     Route: 064
  161. ARAVA [Concomitant]
     Active Substance: LEFLUNOMIDE
     Route: 064
  162. ATOMOXETINE HYDROCHLORIDE [Concomitant]
     Active Substance: ATOMOXETINE HYDROCHLORIDE
     Indication: Product used for unknown indication
     Route: 064
  163. ATOMOXETINE HYDROCHLORIDE [Concomitant]
     Active Substance: ATOMOXETINE HYDROCHLORIDE
     Route: 064
  164. BERINERT [Concomitant]
     Active Substance: HUMAN C1-ESTERASE INHIBITOR
     Indication: Product used for unknown indication
     Route: 064
  165. BOTULINUM TOXIN TYPE A [Concomitant]
     Active Substance: BOTULINUM TOXIN TYPE A
     Indication: Product used for unknown indication
     Route: 064
  166. BUTRANS [Concomitant]
     Active Substance: BUPRENORPHINE
     Indication: Product used for unknown indication
     Route: 064
  167. CALCIUM ASCORBATE [Concomitant]
     Active Substance: CALCIUM ASCORBATE
     Indication: Product used for unknown indication
     Route: 064
  168. CALCIUM GLUBIONATE [Concomitant]
     Active Substance: CALCIUM GLUBIONATE
     Indication: Product used for unknown indication
     Route: 064
  169. CALCIUM CITRATE [Concomitant]
     Active Substance: CALCIUM CITRATE
     Indication: Product used for unknown indication
     Route: 064
  170. CELEBREX [Concomitant]
     Active Substance: CELECOXIB
     Indication: Product used for unknown indication
     Route: 064
  171. CELEBREX [Concomitant]
     Active Substance: CELECOXIB
     Route: 064
  172. CIMZIA [Concomitant]
     Active Substance: CERTOLIZUMAB PEGOL
     Indication: Product used for unknown indication
     Route: 064
  173. CIMZIA [Concomitant]
     Active Substance: CERTOLIZUMAB PEGOL
     Route: 064
  174. CIMZIA [Concomitant]
     Active Substance: CERTOLIZUMAB PEGOL
     Route: 064
  175. CORTISONE ACETATE [Concomitant]
     Active Substance: CORTISONE ACETATE
     Indication: Product used for unknown indication
     Route: 064
  176. CORTISONE ACETATE [Concomitant]
     Active Substance: CORTISONE ACETATE
     Route: 064
  177. DESOXIMETASONE [Concomitant]
     Active Substance: DESOXIMETASONE
     Indication: Product used for unknown indication
     Route: 064
  178. DESOXIMETASONE [Concomitant]
     Active Substance: DESOXIMETASONE
     Route: 064
  179. DESOXIMETASONE [Concomitant]
     Active Substance: DESOXIMETASONE
     Route: 064
  180. DESOXIMETASONE [Concomitant]
     Active Substance: DESOXIMETASONE
     Route: 064
  181. DICLOFENAC SODIUM [Concomitant]
     Active Substance: DICLOFENAC SODIUM
     Indication: Product used for unknown indication
     Route: 064
  182. DOMPERIDONE MALEATE [Concomitant]
     Active Substance: DOMPERIDONE MALEATE
     Indication: Product used for unknown indication
     Route: 064
  183. ENBREL [Concomitant]
     Active Substance: ETANERCEPT
     Indication: Product used for unknown indication
     Route: 064
  184. ENBREL [Concomitant]
     Active Substance: ETANERCEPT
     Route: 064
  185. ENBREL [Concomitant]
     Active Substance: ETANERCEPT
     Route: 064
  186. ENBREL [Concomitant]
     Active Substance: ETANERCEPT
     Route: 064
  187. ENBREL [Concomitant]
     Active Substance: ETANERCEPT
     Route: 064
  188. ENBREL [Concomitant]
     Active Substance: ETANERCEPT
     Route: 064
  189. ERGOCALCIFEROL [Concomitant]
     Active Substance: ERGOCALCIFEROL
     Indication: Product used for unknown indication
     Route: 064
  190. FLUMETHASONE [Concomitant]
     Active Substance: FLUMETHASONE
     Indication: Product used for unknown indication
     Route: 064
  191. FOSAMAX [Concomitant]
     Active Substance: ALENDRONATE SODIUM
     Indication: Product used for unknown indication
     Route: 064
  192. FOSAMAX [Concomitant]
     Active Substance: ALENDRONATE SODIUM
     Route: 064
  193. GOLD [Concomitant]
     Active Substance: GOLD
     Indication: Product used for unknown indication
     Route: 064
  194. ISOPROPYL ALCOHOL [Concomitant]
     Active Substance: ISOPROPYL ALCOHOL
     Indication: Product used for unknown indication
     Route: 064
  195. ISOPROPYL ALCOHOL [Concomitant]
     Active Substance: ISOPROPYL ALCOHOL
     Route: 064
  196. TUMS [Concomitant]
     Active Substance: CALCIUM CARBONATE
     Indication: Product used for unknown indication
     Route: 064
  197. VITAMIN D3 [Concomitant]
     Active Substance: CHOLECALCIFEROL
     Indication: Product used for unknown indication
  198. STELARA [Concomitant]
     Active Substance: USTEKINUMAB
     Indication: Product used for unknown indication
     Route: 064
  199. STELARA [Concomitant]
     Active Substance: USTEKINUMAB
     Route: 064
  200. CETIRIZINE HYDROCHLORIDE [Concomitant]
     Active Substance: CETIRIZINE HYDROCHLORIDE
     Indication: Product used for unknown indication
     Route: 064
  201. CETIRIZINE HYDROCHLORIDE [Concomitant]
     Active Substance: CETIRIZINE HYDROCHLORIDE
     Route: 064
  202. CETIRIZINE HYDROCHLORIDE [Concomitant]
     Active Substance: CETIRIZINE HYDROCHLORIDE
     Route: 064
  203. CETIRIZINE HYDROCHLORIDE [Concomitant]
     Active Substance: CETIRIZINE HYDROCHLORIDE
     Route: 064
  204. CETIRIZINE HYDROCHLORIDE [Concomitant]
     Active Substance: CETIRIZINE HYDROCHLORIDE
     Route: 064
  205. METHYLPREDNISOLONE SODIUM SUCCINATE [Concomitant]
     Active Substance: METHYLPREDNISOLONE SODIUM SUCCINATE
     Indication: Product used for unknown indication
     Route: 064
  206. CHLORHEXIDINE GLUCONATE\ISOPROPYL ALCOHOL [Concomitant]
     Active Substance: CHLORHEXIDINE GLUCONATE\ISOPROPYL ALCOHOL
     Indication: Product used for unknown indication
     Route: 064
  207. KEVZARA [Concomitant]
     Active Substance: SARILUMAB
     Indication: Product used for unknown indication
     Route: 064
  208. LEFLUNOMIDE [Concomitant]
     Active Substance: LEFLUNOMIDE
     Indication: Product used for unknown indication
     Route: 064
  209. LEFLUNOMIDE [Concomitant]
     Active Substance: LEFLUNOMIDE
     Route: 064
  210. LEFLUNOMIDE [Concomitant]
     Active Substance: LEFLUNOMIDE
     Route: 064
  211. LEFLUNOMIDE [Concomitant]
     Active Substance: LEFLUNOMIDE
     Route: 064
  212. LEFLUNOMIDE [Concomitant]
     Active Substance: LEFLUNOMIDE
     Route: 064
  213. ALENDRONIC ACID [Concomitant]
     Active Substance: ALENDRONIC ACID
     Indication: Product used for unknown indication
     Route: 064
  214. ALENDRONIC ACID [Concomitant]
     Active Substance: ALENDRONIC ACID
     Route: 064
  215. ALENDRONIC ACID [Concomitant]
     Active Substance: ALENDRONIC ACID
     Route: 064
  216. ALENDRONIC ACID [Concomitant]
     Active Substance: ALENDRONIC ACID
     Route: 064
  217. ALENDRONIC ACID [Concomitant]
     Active Substance: ALENDRONIC ACID
     Route: 064
  218. ALENDRONIC ACID [Concomitant]
     Active Substance: ALENDRONIC ACID
     Route: 064
  219. PREDNISONE [Concomitant]
     Active Substance: PREDNISONE
     Indication: Product used for unknown indication
     Route: 064
  220. PREDNISONE [Concomitant]
     Active Substance: PREDNISONE
     Route: 064
  221. PREDNISONE [Concomitant]
     Active Substance: PREDNISONE
     Route: 064
  222. PREDNISONE [Concomitant]
     Active Substance: PREDNISONE
     Route: 064
  223. PREDNISONE [Concomitant]
     Active Substance: PREDNISONE
     Route: 064
  224. PREDNISONE [Concomitant]
     Active Substance: PREDNISONE
     Route: 064
  225. PREDNISONE [Concomitant]
     Active Substance: PREDNISONE
     Route: 064
  226. PREDNISONE [Concomitant]
     Active Substance: PREDNISONE
     Route: 064
  227. PREDNISONE [Concomitant]
     Active Substance: PREDNISONE
     Route: 064
  228. PREDNISONE [Concomitant]
     Active Substance: PREDNISONE
     Route: 064
  229. TRAMADOL HYDROCHLORIDE [Concomitant]
     Active Substance: TRAMADOL HYDROCHLORIDE
     Indication: Product used for unknown indication
     Route: 064
  230. CHLORHEXIDINE GLUCONATE [Concomitant]
     Active Substance: CHLORHEXIDINE GLUCONATE
     Indication: Product used for unknown indication
     Route: 064
  231. GOLIMUMAB [Concomitant]
     Active Substance: GOLIMUMAB
     Indication: Product used for unknown indication
     Route: 064
  232. HUMIRA [Concomitant]
     Active Substance: ADALIMUMAB
     Indication: Product used for unknown indication
     Route: 064
  233. HUMIRA [Concomitant]
     Active Substance: ADALIMUMAB
     Route: 064
  234. HUMIRA [Concomitant]
     Active Substance: ADALIMUMAB
     Route: 064
  235. HUMIRA [Concomitant]
     Active Substance: ADALIMUMAB
     Route: 064
  236. HYRIMOZ [Concomitant]
     Active Substance: ADALIMUMAB-ADAZ
     Indication: Product used for unknown indication
     Route: 064
  237. PREPARATION H HYDROCORTISONE [Concomitant]
     Active Substance: HYDROCORTISONE
     Indication: Product used for unknown indication
     Route: 064
  238. PREPARATION H HYDROCORTISONE [Concomitant]
     Active Substance: HYDROCORTISONE
     Route: 064
  239. PREPARATION H HYDROCORTISONE [Concomitant]
     Active Substance: HYDROCORTISONE
     Route: 064
  240. PREPARATION H HYDROCORTISONE [Concomitant]
     Active Substance: HYDROCORTISONE
     Route: 064
  241. TOPIRAMATE [Concomitant]
     Active Substance: TOPIRAMATE
     Indication: Product used for unknown indication
     Route: 064
  242. TOPIRAMATE [Concomitant]
     Active Substance: TOPIRAMATE
     Route: 064
  243. TOPIRAMATE [Concomitant]
     Active Substance: TOPIRAMATE
     Route: 064
  244. DICLOFENAC DIETHYLAMINE [Concomitant]
     Active Substance: DICLOFENAC DIETHYLAMINE
     Indication: Product used for unknown indication
     Route: 064
  245. MEGLUMINE [Concomitant]
     Active Substance: MEGLUMINE
     Indication: Product used for unknown indication
  246. DEXTROMETHORPHAN [Concomitant]
     Active Substance: DEXTROMETHORPHAN
     Indication: Product used for unknown indication

REACTIONS (2)
  - Foetal exposure during pregnancy [Unknown]
  - Congenital anomaly [Unknown]
